FAERS Safety Report 11487363 (Version 1)
Quarter: 2015Q3

REPORT INFORMATION
  Report Type: Spontaneous
  Country: US (occurrence: US)
  Receive Date: 20150910
  Receipt Date: 20150910
  Transmission Date: 20151125
  Serious: No
  Sender: FDA-Public Use
  Company Number: US-ROCHE-1311126

PATIENT
  Sex: Male

DRUGS (3)
  1. PEGASYS [Suspect]
     Active Substance: PEGINTERFERON ALFA-2A
     Indication: POLYCYTHAEMIA VERA
     Dosage: PATIENT WAS ACTUALLY PRESCRIBED THIS DOSE FOR 1 WEEK ONLY
     Route: 058
     Dates: start: 20130524, end: 20131016
  2. PEGASYS [Suspect]
     Active Substance: PEGINTERFERON ALFA-2A
     Dosage: PATIENT^S MOST RECENT ONGOING DOSE
     Route: 058
     Dates: start: 20130526
  3. PEGASYS [Suspect]
     Active Substance: PEGINTERFERON ALFA-2A
     Dosage: DOSE 240 WAS STARTED 1 WEEK LATER TO 24/MAY/2013
     Route: 058
     Dates: start: 20131016

REACTIONS (5)
  - Rash [Unknown]
  - Arthralgia [Unknown]
  - Vision blurred [Unknown]
  - Visual impairment [Unknown]
  - Influenza like illness [Unknown]
